FAERS Safety Report 6810156-9 (Version None)
Quarter: 2010Q2

REPORT INFORMATION
  Report Type: 
  Country: None (occurrence: None)
  Receive Date: 20100630
  Receipt Date: 20100624
  Transmission Date: 20101027
  Serious: Yes (Other)
  Sender: FDA-Public Use
  Company Number: ZA-ALLERGAN-1008345US

PATIENT
  Age: 37 Year
  Sex: Male

DRUGS (1)
  1. CELLUVISC [Suspect]
     Indication: DRUG USE FOR UNKNOWN INDICATION
     Dosage: UNK
     Route: 047

REACTIONS (4)
  - DYSPNOEA [None]
  - INSOMNIA [None]
  - NERVOUSNESS [None]
  - SWOLLEN TONGUE [None]
